FAERS Safety Report 7044558-5 (Version None)
Quarter: 2010Q4

REPORT INFORMATION
  Report Type: 
  Country: None (occurrence: None)
  Receive Date: 20101014
  Receipt Date: 20101005
  Transmission Date: 20110411
  Serious: Yes (Hospitalization)
  Sender: FDA-Public Use
  Company Number: JP-NOVOPROD-314392

PATIENT
  Age: 37 Year
  Sex: Male
  Weight: 105 kg

DRUGS (20)
  1. VICTOZA [Suspect]
     Indication: TYPE 2 DIABETES MELLITUS
     Dosage: 0.3 MG, QD
     Route: 058
     Dates: start: 20100709, end: 20100716
  2. VICTOZA [Suspect]
     Dosage: 0.6 MG, QD
     Route: 058
     Dates: start: 20100716, end: 20100722
  3. VICTOZA [Suspect]
     Dosage: 0.9 MG, QD
     Route: 058
     Dates: start: 20100722, end: 20100826
  4. APIDRA [Concomitant]
     Dosage: 28 U, QD
     Route: 058
  5. LANTUS [Concomitant]
     Dosage: 32 U, QD
     Route: 058
  6. MELBIN                             /00082702/ [Concomitant]
     Dosage: 750 MG, QD
  7. ACARDI [Concomitant]
     Dosage: 5 MG, QD
  8. ARTIST [Concomitant]
     Dosage: 60 MG, QD
  9. ACECOL [Concomitant]
     Dosage: 8 MG, QD
  10. ZYLORIC                            /00003301/ [Concomitant]
     Dosage: 400 MG, QD
  11. ANCARON [Concomitant]
     Dosage: 100 MG, QD
  12. LASIX [Concomitant]
     Dosage: 40 MG, QD
  13. DIGOXIN [Concomitant]
     Dosage: 0.25 MG, QD
  14. ALDACTONE [Concomitant]
     Dosage: 25 MG, QD
  15. BLOPRESS [Concomitant]
     Dosage: 4 MG, QD
  16. LIVALO [Concomitant]
     Dosage: 2 MG, QD
  17. ZETIA [Concomitant]
     Dosage: 10 MG, QD
  18. BIOFERMIN [Concomitant]
     Dosage: 9 MG, QD
  19. PARIET [Concomitant]
     Dosage: 40 MG, QD
  20. MIGLITOL [Concomitant]
     Dosage: 150 MG DAILY
     Route: 048

REACTIONS (5)
  - CARDIAC FAILURE [None]
  - DECREASED APPETITE [None]
  - OEDEMA [None]
  - PULMONARY OEDEMA [None]
  - WEIGHT INCREASED [None]
